FAERS Safety Report 15661038 (Version 2)
Quarter: 2018Q4

REPORT INFORMATION
  Report Type: Spontaneous
  Country: CN (occurrence: CN)
  Receive Date: 20181127
  Receipt Date: 20181129
  Transmission Date: 20190205
  Serious: Yes (Other)
  Sender: FDA-Public Use
  Company Number: CN-ROCHE-2215211

PATIENT
  Age: 42 Year
  Sex: Female

DRUGS (9)
  1. PEMETREXED. [Suspect]
     Active Substance: PEMETREXED
     Indication: METASTASES TO BONE
  2. CISPLATIN. [Suspect]
     Active Substance: CISPLATIN
     Indication: TUBERCULOSIS
  3. AVASTIN [Suspect]
     Active Substance: BEVACIZUMAB
     Indication: LUNG ADENOCARCINOMA
     Dosage: FOR THE FIRST DAY
     Route: 041
  4. AVASTIN [Suspect]
     Active Substance: BEVACIZUMAB
     Indication: METASTASES TO BONE
  5. CISPLATIN. [Suspect]
     Active Substance: CISPLATIN
     Indication: METASTASES TO BONE
  6. PEMETREXED. [Suspect]
     Active Substance: PEMETREXED
     Indication: TUBERCULOSIS
  7. PEMETREXED. [Suspect]
     Active Substance: PEMETREXED
     Indication: LUNG ADENOCARCINOMA
     Route: 065
  8. CISPLATIN. [Suspect]
     Active Substance: CISPLATIN
     Indication: LUNG ADENOCARCINOMA
     Route: 065
  9. AVASTIN [Suspect]
     Active Substance: BEVACIZUMAB
     Indication: TUBERCULOSIS

REACTIONS (3)
  - Dizziness [Unknown]
  - Orthostatic hypotension [Unknown]
  - Asthenia [Unknown]
